FAERS Safety Report 6867681-4 (Version None)
Quarter: 2010Q3

REPORT INFORMATION
  Report Type: 
  Country: None (occurrence: None)
  Receive Date: 20100722
  Receipt Date: 20100331
  Transmission Date: 20110219
  Serious: No
  Sender: FDA-Public Use
  Company Number: US-BAUSCH-2010BL001754

PATIENT
  Age: 70 Year
  Sex: Female

DRUGS (4)
  1. OPCON-A [Suspect]
     Indication: EYE ALLERGY
     Route: 047
     Dates: start: 20100317
  2. OPCON-A [Suspect]
     Indication: OCULAR HYPERAEMIA
     Route: 047
     Dates: start: 20100317
  3. ISOSORBIDE [Concomitant]
     Indication: PRODUCT USED FOR UNKNOWN INDICATION
     Route: 048
  4. SOOTHE LONG LASTING (PRESERVATIVE FREE) [Concomitant]
     Indication: DRY EYE
     Route: 047

REACTIONS (4)
  - AURA [None]
  - BLOOD PRESSURE INCREASED [None]
  - HEADACHE [None]
  - VISUAL IMPAIRMENT [None]
